FAERS Safety Report 21649980 (Version 1)
Quarter: 2022Q4

REPORT INFORMATION
  Report Type: Spontaneous
  Country: ES (occurrence: ES)
  Receive Date: 20221128
  Receipt Date: 20221128
  Transmission Date: 20230113
  Serious: Yes (Other)
  Sender: FDA-Public Use
  Company Number: ES-BAYER-2022A159648

PATIENT
  Age: 69 Year
  Sex: Male

DRUGS (1)
  1. STIVARGA [Suspect]
     Active Substance: REGORAFENIB
     Dates: start: 20221102, end: 20221113

REACTIONS (4)
  - Hypoaesthesia [None]
  - Hypoaesthesia oral [None]
  - Intranasal hypoaesthesia [None]
  - Hypoaesthesia eye [None]

NARRATIVE: CASE EVENT DATE: 20221114
